FAERS Safety Report 21027802 (Version 2)
Quarter: 2022Q3

REPORT INFORMATION
  Report Type: Spontaneous
  Country: US (occurrence: US)
  Receive Date: 20220630
  Receipt Date: 20220810
  Transmission Date: 20221026
  Serious: Yes (Hospitalization)
  Sender: FDA-Public Use
  Company Number: US-PFIZER INC-202200908207

PATIENT
  Age: 62 Year
  Sex: Female
  Weight: 61.224 kg

DRUGS (1)
  1. PAXLOVID [Suspect]
     Active Substance: NIRMATRELVIR\RITONAVIR
     Indication: COVID-19 treatment
     Dosage: 3 DF, 2X/DAY (NIRMATRELVIR 300MG; RITONAVIR 100MG 2 TIMES A DAY)
     Dates: start: 20220625, end: 20220628

REACTIONS (5)
  - Feeding disorder [Recovered/Resolved]
  - Tremor [Recovered/Resolved]
  - Illness [Unknown]
  - Diarrhoea [Unknown]
  - Blister [Unknown]

NARRATIVE: CASE EVENT DATE: 20220101
